FAERS Safety Report 10872330 (Version 2)
Quarter: 2015Q2

REPORT INFORMATION
  Report Type: Report from Study
  Country: US (occurrence: US)
  Receive Date: 20150226
  Receipt Date: 20150619
  Transmission Date: 20150821
  Serious: Yes (Hospitalization, Other)
  Sender: FDA-Public Use
  Company Number: US-AMGEN-USASP2015012910

PATIENT
  Age: 61 Year
  Sex: Male
  Weight: 97.41 kg

DRUGS (4)
  1. CYTOXAN [Concomitant]
     Active Substance: CYCLOPHOSPHAMIDE
     Indication: PLASMA CELL MYELOMA
     Dosage: 450 MG, PER CHEMO REGIM (40 MG STRENGTH), MONTHLY DAY 1
     Route: 048
     Dates: start: 20140903
  2. DEXAMETHASONE. [Concomitant]
     Active Substance: DEXAMETHASONE
     Indication: PLASMA CELL MYELOMA
     Dosage: 20 MG, PER CHEMO REGIM (100 MG VIAL), DAYS 1, 2, 8, 9, 15, 16
     Route: 042
     Dates: start: 20140903
  3. DECADRON [Concomitant]
     Active Substance: DEXAMETHASONE
     Indication: PLASMA CELL MYELOMA
     Dosage: 40 MG, PER CHEMO REGIM, DAY 22
     Route: 048
     Dates: start: 20140930
  4. CARFILZOMIB [Suspect]
     Active Substance: CARFILZOMIB
     Indication: PLASMA CELL MYELOMA
     Dosage: 30 MG, PER CHEMO REGIM, (60 MG STRENGTH), DAYS 1,2, 8, 9, 15,16
     Route: 042
     Dates: start: 20140903

REACTIONS (2)
  - Upper respiratory tract infection [Not Recovered/Not Resolved]
  - Second primary malignancy [Not Recovered/Not Resolved]

NARRATIVE: CASE EVENT DATE: 20141113
